FAERS Safety Report 6931580-X (Version None)
Quarter: 2010Q3

REPORT INFORMATION
  Report Type: 
  Country: None (occurrence: None)
  Receive Date: 20100819
  Receipt Date: 20100805
  Transmission Date: 20110219
  Serious: Yes (Hospitalization)
  Sender: FDA-Public Use
  Company Number: US-ELI_LILLY_AND_COMPANY-US201008003801

PATIENT
  Sex: Female

DRUGS (7)
  1. FORTEO [Suspect]
     Indication: OSTEOPOROSIS
     Dosage: 20 UG, DAILY (1/D)
     Dates: start: 20090801, end: 20100601
  2. XIFAXAN [Concomitant]
  3. LASIX [Concomitant]
  4. ALDACTONE [Concomitant]
  5. CELEXA [Concomitant]
  6. VITAMIN D [Concomitant]
  7. CALCIUM [Concomitant]

REACTIONS (6)
  - DEHYDRATION [None]
  - ENCEPHALOPATHY [None]
  - LIVER TRANSPLANT [None]
  - NAUSEA [None]
  - PNEUMONIA [None]
  - VOMITING [None]
